FAERS Safety Report 6315045-4 (Version None)
Quarter: 2009Q3

REPORT INFORMATION
  Report Type: 
  Country: None (occurrence: None)
  Receive Date: 20090818
  Receipt Date: 20090818
  Transmission Date: 20100115
  Serious: Yes (Life-Threatening)
  Sender: FDA-Public Use
  Company Number: None

PATIENT
  Age: 30 Year
  Sex: Female
  Weight: 68.0396 kg

DRUGS (2)
  1. THYROID TAB [Suspect]
     Indication: HYPOTHYROIDISM
     Dosage: 1 TABLET 2 TIMES DAILY PO 3MONTHS, APPROXIMATELY
     Route: 048
     Dates: start: 20090601, end: 20090810
  2. THYROID TAB [Suspect]
     Indication: HYPOTHYROIDISM
     Dosage: 1 TABLET 3 TIMES DAILY PO
     Route: 048

REACTIONS (4)
  - DYSPNOEA [None]
  - PHARYNGEAL OEDEMA [None]
  - REACTION TO DRUG EXCIPIENTS [None]
  - URTICARIA [None]
